FAERS Safety Report 6409475-X (Version None)
Quarter: 2009Q4

REPORT INFORMATION
  Report Type: 
  Country: None (occurrence: None)
  Receive Date: 20091016
  Receipt Date: 20091006
  Transmission Date: 20100525
  Serious: Yes (Death)
  Sender: FDA-Public Use
  Company Number: AE 2009-132

PATIENT
  Age: 100 Year
  Sex: Female

DRUGS (5)
  1. FAZACLO ODT [Suspect]
     Dosage: 75 MG DAILY PO
     Route: 048
     Dates: start: 20090911, end: 20090918
  2. LASIX [Concomitant]
  3. LEVOTHYROXINE SODIUM [Concomitant]
  4. PROTONIX [Concomitant]
  5. POTASSIUM CHLORIDE [Concomitant]

REACTIONS (1)
  - DEATH [None]
